FAERS Safety Report 4413101-9 (Version None)
Quarter: 2004Q3

REPORT INFORMATION
  Report Type: 
  Country: None (occurrence: None)
  Receive Date: 20040802
  Receipt Date: 20040722
  Transmission Date: 20050211
  Serious: Yes (Other)
  Sender: FDA-Public Use
  Company Number: US-ROCHE-375355

PATIENT
  Sex: Male

DRUGS (2)
  1. COPEGUS [Suspect]
     Indication: HEPATITIS
     Route: 048
     Dates: start: 20040215
  2. PEG-INTRON [Suspect]
     Indication: HEPATITIS
     Route: 058
     Dates: start: 20040215

REACTIONS (18)
  - ANAEMIA [None]
  - ANGER [None]
  - ARTHRALGIA [None]
  - CONFUSIONAL STATE [None]
  - DERMATITIS [None]
  - DYSGEUSIA [None]
  - DYSPNOEA [None]
  - FATIGUE [None]
  - INSOMNIA [None]
  - MEMORY IMPAIRMENT [None]
  - MOOD SWINGS [None]
  - NAUSEA [None]
  - NERVOUSNESS [None]
  - PAIN [None]
  - PANIC ATTACK [None]
  - PARANOIA [None]
  - VOMITING [None]
  - WEIGHT DECREASED [None]
